FAERS Safety Report 4822553-1 (Version None)
Quarter: 2005Q4

REPORT INFORMATION
  Report Type: 
  Country: None (occurrence: None)
  Receive Date: 20051104
  Receipt Date: 20051021
  Transmission Date: 20060501
  Serious: Yes (Other)
  Sender: FDA-Public Use
  Company Number: S05-FRA-03472-01

PATIENT
  Age: 37 Year
  Sex: Female
  Weight: 87 kg

DRUGS (4)
  1. SEROPLEX (ESCITALOPRAM) [Suspect]
     Indication: DEPRESSION
     Dosage: 5 MG QD PO
     Dates: start: 20050720, end: 20050725
  2. SEROPLEX (ESCITALOPRAM) [Suspect]
     Indication: DEPRESSION
     Dosage: 5 MG QD PO
     Route: 048
     Dates: start: 20050901
  3. PAROXETINE HYDROCHLORIDE [Suspect]
     Indication: DEPRESSION
     Dates: start: 20050801, end: 20050801
  4. XANAX [Concomitant]

REACTIONS (5)
  - AGGRESSION [None]
  - ANXIETY [None]
  - HOMICIDAL IDEATION [None]
  - PSYCHIATRIC SYMPTOM [None]
  - SUICIDAL IDEATION [None]
